FAERS Safety Report 9028103 (Version 1)
Quarter: 2013Q1

REPORT INFORMATION
  Report Type: Spontaneous
  Country: US (occurrence: None)
  Receive Date: 20130114
  Receipt Date: 20130114
  Transmission Date: 20140127
  Serious: Yes (Hospitalization)
  Sender: FDA-Public Use
  Company Number: None

PATIENT
  Age: 83 Year
  Sex: Female
  Weight: 51.07 kg

DRUGS (14)
  1. IPILIMUMAB [Suspect]
     Route: 042
     Dates: start: 20121011, end: 20121212
  2. GEMCITABINE [Suspect]
     Dates: start: 20121011, end: 20130102
  3. INSULIN PEN NEEDLE [Concomitant]
  4. GLYBURIDE [Concomitant]
  5. INSULIN [Concomitant]
  6. GLARGINE (LANTUS) [Concomitant]
  7. DOCUSATE SODIUM (COLACE) [Concomitant]
  8. SIMETHICONE [Suspect]
  9. LACTASE (LACTAID) [Concomitant]
  10. METOCLOPRAMIDE [Concomitant]
  11. LANCETS (BD LANCET ULTRAFINE 30G) [Concomitant]
  12. DALTEPARIN [Concomitant]
  13. ACETAMINOPHEN (TYLENOL EXTRA STRENGTH) [Concomitant]
  14. LANSOPRAZOLE (PREVACID) [Concomitant]

REACTIONS (3)
  - Vomiting [None]
  - Abdominal pain lower [None]
  - Abdominal pain upper [None]
